FAERS Safety Report 12283704 (Version 1)
Quarter: 2016Q2

REPORT INFORMATION
  Report Type: Spontaneous
  Country: US (occurrence: US)
  Receive Date: 20160419
  Receipt Date: 20160419
  Transmission Date: 20160815
  Serious: No
  Sender: FDA-Public Use
  Company Number: US-BANPHARM-20164617

PATIENT
  Age: 57 Year
  Sex: Female
  Weight: 59.42 kg

DRUGS (2)
  1. HORMONE REPLACEMENT THERAPY [Concomitant]
     Active Substance: UNSPECIFIED INGREDIENT
  2. ALEVE [Suspect]
     Active Substance: NAPROXEN SODIUM
     Indication: PAIN
     Dosage: 1 DF, PRN,
     Route: 048

REACTIONS (3)
  - Product quality issue [Unknown]
  - Self-induced vomiting [Unknown]
  - Hypoaesthesia oral [Recovered/Resolved]
